FAERS Safety Report 8716465 (Version 2)
Quarter: 2012Q4

REPORT INFORMATION
  Report Type: 
  Country: US (occurrence: US)
  Receive Date: 20120810
  Receipt Date: 20121029
  Transmission Date: 20130627
  Serious: No
  Sender: FDA-Public Use
  Company Number: US-009507513-1208USA001549

PATIENT
  Sex: Female

DRUGS (1)
  1. COSOPT [Suspect]
     Dosage: eye drops
     Route: 047
     Dates: start: 201207

REACTIONS (2)
  - Drug dose omission [Unknown]
  - Product quality issue [Unknown]
